FAERS Safety Report 10012156 (Version 1)
Quarter: 2014Q1

REPORT INFORMATION
  Report Type: Report from Study
  Country: BE (occurrence: BE)
  Receive Date: 20140314
  Receipt Date: 20140314
  Transmission Date: 20141002
  Serious: Yes (Other)
  Sender: FDA-Public Use
  Company Number: BE-SA-2014SA032287

PATIENT
  Sex: 0

DRUGS (1)
  1. CLOPIDOGREL BISULFATE [Suspect]
     Indication: CORONARY ARTERY DISEASE
     Dosage: LOADING DOSE
     Route: 065

REACTIONS (1)
  - Platelet aggregation increased [Unknown]
